FAERS Safety Report 5221898-3 (Version None)
Quarter: 2007Q1

REPORT INFORMATION
  Report Type: 
  Country: None (occurrence: None)
  Receive Date: 20070126
  Receipt Date: 20070126
  Transmission Date: 20070707
  Serious: Yes (Hospitalization)
  Sender: FDA-Public Use
  Company Number: None

PATIENT
  Age: 47 Year
  Sex: Male
  Weight: 83.9154 kg

DRUGS (1)
  1. PROAIR HFA [Suspect]
     Indication: ASTHMA
     Dosage: 2 PUFFS   AS NEEDED  PO
     Route: 048
     Dates: start: 20061215, end: 20061231

REACTIONS (8)
  - ASTHMA [None]
  - CONDITION AGGRAVATED [None]
  - DEVICE FAILURE [None]
  - DRUG EFFECT DECREASED [None]
  - DYSGEUSIA [None]
  - LUNG DISORDER [None]
  - NASOPHARYNGITIS [None]
  - PHARMACEUTICAL PRODUCT COMPLAINT [None]
